FAERS Safety Report 17801751 (Version 1)
Quarter: 2020Q2

REPORT INFORMATION
  Report Type: Spontaneous
  Country: US (occurrence: US)
  Receive Date: 20200518
  Receipt Date: 20200518
  Transmission Date: 20200714
  Serious: Yes (Life-Threatening)
  Sender: FDA-Public Use
  Company Number: None

PATIENT
  Age: 79 Year
  Sex: Male
  Weight: 97.5 kg

DRUGS (12)
  1. ACETAMINOPHEN 650MG PO [Concomitant]
     Dates: start: 20200411, end: 20200425
  2. HYDROXYCHLOROTHIAZIDE 25MG PO [Concomitant]
     Dates: start: 20200412, end: 20200420
  3. ASPIRIN 81MG PO [Concomitant]
     Dates: start: 20200412, end: 20200425
  4. ENOXAPARIN 40MG SC [Concomitant]
     Dates: start: 20200412, end: 20200423
  5. HYDROXYCHLOROQUINE SULFATE. [Suspect]
     Active Substance: HYDROXYCHLOROQUINE SULFATE
     Indication: COVID-19
     Dosage: ?          OTHER FREQUENCY:BID X1DAY,THEN QD;?
     Route: 048
     Dates: start: 20200414, end: 20200418
  6. MEROPENEM 500MG IV [Concomitant]
     Dates: start: 20200413, end: 20200420
  7. GABAPENTIN 300MG PO [Concomitant]
     Dates: start: 20200412, end: 20200420
  8. LISINOPRIL 40MG PO [Concomitant]
     Dates: start: 20200412, end: 20200424
  9. ATORVASTATIN 40MG PO [Concomitant]
     Dates: start: 20200412, end: 20200425
  10. AZITHROMYCIN 500MG IV [Concomitant]
     Active Substance: AZITHROMYCIN ANHYDROUS
     Dates: start: 20200413, end: 20200415
  11. LEVOTHYROXINE 25 MCG PO [Concomitant]
     Dates: start: 20200412, end: 20200425
  12. SERTRALINE 50MG [Concomitant]
     Active Substance: SERTRALINE HYDROCHLORIDE
     Dates: start: 20200412, end: 20200425

REACTIONS (1)
  - Electrocardiogram QT prolonged [None]

NARRATIVE: CASE EVENT DATE: 20200418
